FAERS Safety Report 10662821 (Version 1)
Quarter: 2014Q4

REPORT INFORMATION
  Report Type: Spontaneous
  Country: US (occurrence: US)
  Receive Date: 20141218
  Receipt Date: 20141218
  Transmission Date: 20150529
  Serious: Yes (Other)
  Sender: FDA-Public Use
  Company Number: US-WATSON-2014-26698

PATIENT
  Sex: Male

DRUGS (2)
  1. BUPROPION HCL ER [Suspect]
     Active Substance: BUPROPION HYDROCHLORIDE
     Indication: PRODUCT USED FOR UNKNOWN INDICATION
     Dosage: 1 DF, DAILY
     Route: 048
  2. BUPROPION HYDROCHLORIDE (WATSON LABORATORIES) [Suspect]
     Active Substance: BUPROPION HYDROCHLORIDE
     Indication: PRODUCT USED FOR UNKNOWN INDICATION
     Dosage: 1 DF, DAILY
     Route: 048

REACTIONS (2)
  - Joint injury [Unknown]
  - Generalised tonic-clonic seizure [Unknown]
